FAERS Safety Report 7505560-X (Version None)
Quarter: 2011Q2

REPORT INFORMATION
  Report Type: 
  Country: None (occurrence: None)
  Receive Date: 20110519
  Receipt Date: 20110504
  Transmission Date: 20111010
  Serious: Yes (Death, Hospitalization)
  Sender: FDA-Public Use
  Company Number: 2011096556

PATIENT
  Age: 72 Year
  Sex: Male

DRUGS (7)
  1. BISOPROLOL FUMARATE [Concomitant]
  2. RAMIPRIL [Concomitant]
  3. SPIRONOLACTONE [Concomitant]
  4. PRAVASTATIN [Concomitant]
  5. DALTEPARIN SODIUM [Suspect]
     Indication: LUNG NEOPLASM MALIGNANT
     Dates: start: 20110211, end: 20110427
  6. SYMBICORT [Concomitant]
  7. CODEINE PHOSPHATE AND ACETAMINOPHEN [Concomitant]

REACTIONS (16)
  - ANAEMIA [None]
  - BLOOD CREATINE INCREASED [None]
  - BLOOD MAGNESIUM DECREASED [None]
  - NEUTROPENIC SEPSIS [None]
  - HYPOPHOSPHATAEMIA [None]
  - BLOOD ALBUMIN DECREASED [None]
  - WHITE BLOOD CELL COUNT DECREASED [None]
  - HAEMOGLOBIN DECREASED [None]
  - GLOBULINS DECREASED [None]
  - THROMBOCYTOPENIA [None]
  - URINE OUTPUT DECREASED [None]
  - ATRIAL FIBRILLATION [None]
  - PROTEIN TOTAL DECREASED [None]
  - GENERAL PHYSICAL HEALTH DETERIORATION [None]
  - LEFT VENTRICULAR FAILURE [None]
  - LYMPHOCYTE COUNT DECREASED [None]
